FAERS Safety Report 15664052 (Version 2)
Quarter: 2019Q1

REPORT INFORMATION
  Report Type: Report from Study
  Country: US (occurrence: US)
  Receive Date: 20181128
  Receipt Date: 20190104
  Transmission Date: 20190417
  Serious: Yes (Hospitalization)
  Sender: FDA-Public Use
  Company Number: US-GILEAD-2018-0345857

PATIENT
  Age: 44 Year
  Sex: Female

DRUGS (23)
  1. AMBRISENTAN [Suspect]
     Active Substance: AMBRISENTAN
     Indication: PULMONARY ARTERIAL HYPERTENSION
     Dosage: 10 MG, QD
     Route: 065
     Dates: start: 20150420
  2. POTASSIUM [Concomitant]
     Active Substance: POTASSIUM
  3. KLONOPIN [Concomitant]
     Active Substance: CLONAZEPAM
  4. PREDNISONE. [Concomitant]
     Active Substance: PREDNISONE
  5. TUSSIN [GUAIFENESIN] [Concomitant]
  6. METOLAZONE. [Concomitant]
     Active Substance: METOLAZONE
  7. TRAVASOL [Concomitant]
     Active Substance: ALANINE\ARGININE\GLYCINE\HISTIDINE\ISOLEUCINE\LEUCINE\LYSINE HYDROCHLORIDE\METHIONINE\PHENYLALANINE\PROLINE\SERINE\THREONINE\TRYPTOPHAN\TYROSINE\VALINE
  8. OXYGEN. [Concomitant]
     Active Substance: OXYGEN
  9. LASIX [Concomitant]
     Active Substance: FUROSEMIDE
  10. TYLENOL 8HR [Concomitant]
     Active Substance: ACETAMINOPHEN
  11. CLARITIN ALLERGIC [Concomitant]
  12. WARFARIN [Concomitant]
     Active Substance: WARFARIN
  13. ADEMPAS [Concomitant]
     Active Substance: RIOCIGUAT
  14. ALBUTEROL                          /00139501/ [Concomitant]
     Active Substance: ALBUTEROL
  15. SPIRONOLACTONE. [Concomitant]
     Active Substance: SPIRONOLACTONE
  16. METOPROLOL. [Concomitant]
     Active Substance: METOPROLOL
  17. DILTIAZEM. [Concomitant]
     Active Substance: DILTIAZEM
  18. CHANTIX [Concomitant]
     Active Substance: VARENICLINE TARTRATE
  19. METOPROLOL SUCCINATE. [Concomitant]
     Active Substance: METOPROLOL SUCCINATE
  20. MUCINEX [Concomitant]
     Active Substance: GUAIFENESIN
  21. MIRALAX [Concomitant]
     Active Substance: POLYETHYLENE GLYCOL 3350
  22. RANITIDINE. [Concomitant]
     Active Substance: RANITIDINE
  23. MIDAZOLAM [Concomitant]
     Active Substance: MIDAZOLAM HYDROCHLORIDE

REACTIONS (5)
  - Cyst [Unknown]
  - Nasal congestion [Not Recovered/Not Resolved]
  - Lung disorder [Not Recovered/Not Resolved]
  - Fall [Unknown]
  - Nasal congestion [Recovered/Resolved]

NARRATIVE: CASE EVENT DATE: 20180901
